FAERS Safety Report 6431815-6 (Version None)
Quarter: 2009Q4

REPORT INFORMATION
  Report Type: 
  Country: None (occurrence: None)
  Receive Date: 20091104
  Receipt Date: 20091022
  Transmission Date: 20100525
  Serious: Yes (Disabling)
  Sender: FDA-Public Use
  Company Number: OSCN-NO-0910L-0478

PATIENT
  Age: 54 Year
  Sex: Male

DRUGS (12)
  1. OMNISCAN [Suspect]
     Indication: ARTERIOSCLEROSIS
     Dosage: SINGLE DOSE
     Dates: start: 20030501, end: 20030501
  2. OMNISCAN [Suspect]
     Indication: RENAL CELL CARCINOMA
     Dosage: SINGLE DOSE
     Dates: start: 20030501, end: 20030501
  3. OMNISCAN [Suspect]
     Indication: ARTERIOSCLEROSIS
     Dosage: SINGLE DOSE
     Dates: start: 20040101, end: 20040101
  4. OMNISCAN [Suspect]
     Indication: RENAL CELL CARCINOMA
     Dosage: SINGLE DOSE
     Dates: start: 20040101, end: 20040101
  5. PANTOPRAZOLE [Concomitant]
  6. BISOPROLOL [Concomitant]
  7. DIGITOXIN INJ [Concomitant]
  8. ALFACALCIDOL [Concomitant]
  9. CALCIUM SUPPLEMENT [Concomitant]
  10. PHENPROCOUMON [Concomitant]
  11. EPOGEN [Concomitant]
  12. SEVERAL ACE INHIBITORS [Concomitant]

REACTIONS (10)
  - ARRHYTHMIA [None]
  - ARTERIOSCLEROSIS [None]
  - ERYSIPELAS [None]
  - GENERAL PHYSICAL HEALTH DETERIORATION [None]
  - HAND DEFORMITY [None]
  - LEG AMPUTATION [None]
  - NEPHROGENIC SYSTEMIC FIBROSIS [None]
  - OSTEONECROSIS [None]
  - PYREXIA [None]
  - SKIN INDURATION [None]
